FAERS Safety Report 21560411 (Version 2)
Quarter: 2022Q4

REPORT INFORMATION
  Report Type: Report from Study
  Country: US (occurrence: US)
  Receive Date: 20221107
  Receipt Date: 20221228
  Transmission Date: 20230112
  Serious: No
  Sender: FDA-Public Use
  Company Number: US-ABBVIE-4154351

PATIENT
  Age: 61 Year
  Sex: Female

DRUGS (8)
  1. RINVOQ [Suspect]
     Active Substance: UPADACITINIB
     Indication: Rheumatoid arthritis
     Route: 048
     Dates: start: 20200320
  2. VENLAFAXINE CAP 37.5 ER [Concomitant]
     Indication: Product used for unknown indication
     Route: 065
  3. ZOLPIDEM [Concomitant]
     Active Substance: ZOLPIDEM TARTRATE
     Indication: Product used for unknown indication
     Route: 065
  4. FOLIC ACID TAB 1MG [Concomitant]
     Indication: Product used for unknown indication
     Route: 065
  5. VITAMIN B-12 TAB 100MCG [Concomitant]
     Indication: Product used for unknown indication
     Route: 065
  6. FIRST-OMEPRA SUS 2MG/ML [Concomitant]
     Indication: Product used for unknown indication
     Route: 065
  7. METHOTREXATE [Concomitant]
     Active Substance: METHOTREXATE
     Indication: Product used for unknown indication
     Route: 065
  8. IBUPROFEN TAB 600MG [Concomitant]
     Indication: Product used for unknown indication
     Route: 065

REACTIONS (1)
  - COVID-19 [Recovering/Resolving]

NARRATIVE: CASE EVENT DATE: 20220930
